FAERS Safety Report 13682087 (Version 2)
Quarter: 2018Q3

REPORT INFORMATION
  Report Type: Spontaneous
  Country: US (occurrence: US)
  Receive Date: 20170623
  Receipt Date: 20180724
  Transmission Date: 20181010
  Serious: No
  Sender: FDA-Public Use
  Company Number: US-BAUSCH-BL-2017-010369

PATIENT
  Sex: Male
  Weight: 79.45 kg

DRUGS (2)
  1. JUBLIA [Suspect]
     Active Substance: EFINACONAZOLE
     Indication: FUNGAL INFECTION
     Dosage: APPLIED TO 10 TOENAILS TWICE DAILY
     Route: 061
     Dates: start: 2015
  2. FISH OIL [Concomitant]
     Active Substance: FISH OIL
     Indication: SUPPLEMENTATION THERAPY
     Route: 048

REACTIONS (3)
  - Treatment noncompliance [Unknown]
  - Product quality issue [Unknown]
  - Drug ineffective [Unknown]
